FAERS Safety Report 15286563 (Version 1)
Quarter: 2018Q3

REPORT INFORMATION
  Report Type: Spontaneous
  Country: US (occurrence: US)
  Receive Date: 20180816
  Receipt Date: 20180816
  Transmission Date: 20181010
  Serious: No
  Sender: FDA-Public Use
  Company Number: US-ACTELION-A-US2018-177488

PATIENT
  Age: 59 Year
  Sex: Female
  Weight: 92.97 kg

DRUGS (1)
  1. TRACLEER [Suspect]
     Active Substance: BOSENTAN
     Indication: PULMONARY ARTERIAL HYPERTENSION
     Dosage: 125 MG, BID
     Route: 048

REACTIONS (5)
  - Nasopharyngitis [Unknown]
  - Headache [Unknown]
  - Malaise [Unknown]
  - Ear congestion [Unknown]
  - Nasal congestion [Unknown]
